FAERS Safety Report 7049373-4 (Version None)
Quarter: 2010Q4

REPORT INFORMATION
  Report Type: 
  Country: None (occurrence: None)
  Receive Date: 20101018
  Receipt Date: 20101005
  Transmission Date: 20110411
  Serious: Yes (Other)
  Sender: FDA-Public Use
  Company Number: US-ROCHE-721905

PATIENT
  Sex: Male
  Weight: 113.4 kg

DRUGS (7)
  1. ACCUTANE [Suspect]
     Route: 048
     Dates: start: 19950306, end: 19950405
  2. ACCUTANE [Suspect]
     Route: 048
     Dates: start: 19950427, end: 19950621
  3. ACCUTANE [Suspect]
     Route: 048
     Dates: start: 19950718, end: 19950817
  4. ACCUTANE [Suspect]
     Route: 048
     Dates: start: 19961210, end: 19970109
  5. ACCUTANE [Suspect]
     Route: 048
     Dates: start: 19970123, end: 19970222
  6. ACCUTANE [Suspect]
     Route: 048
     Dates: start: 19970307, end: 19970523
  7. AMITRIPTYLINE [Concomitant]
     Indication: HEADACHE

REACTIONS (15)
  - ALANINE AMINOTRANSFERASE INCREASED [None]
  - AMBLYOPIA [None]
  - BACK PAIN [None]
  - BLOOD TRIGLYCERIDES INCREASED [None]
  - COLITIS ULCERATIVE [None]
  - DEPRESSION [None]
  - DERMATITIS CONTACT [None]
  - EPISTAXIS [None]
  - ERYTHEMA [None]
  - HYPERMETROPIA [None]
  - LIP DRY [None]
  - RASH PRURITIC [None]
  - ROAD TRAFFIC ACCIDENT [None]
  - SKIN PAPILLOMA [None]
  - SUICIDAL IDEATION [None]
